FAERS Safety Report 8076083-7 (Version None)
Quarter: 2012Q1

REPORT INFORMATION
  Report Type: 
  Country: None (occurrence: None)
  Receive Date: 20120127
  Receipt Date: 20110812
  Transmission Date: 20120608
  Serious: Yes (Other)
  Sender: FDA-Public Use
  Company Number: US-GLAXOSMITHKLINE-A0940909A

PATIENT
  Age: 29 Year
  Sex: Male

DRUGS (5)
  1. AMBIEN [Concomitant]
  2. BUPROPION HYDROCHLORIDE [Suspect]
     Indication: DEPRESSION
     Dosage: 150MG PER DAY
     Route: 048
     Dates: start: 20100714
  3. SONATA [Concomitant]
  4. HYDROCODONE [Concomitant]
  5. OXYCODONE HCL [Concomitant]

REACTIONS (1)
  - GASTRIC ULCER [None]
